FAERS Safety Report 25780058 (Version 2)
Quarter: 2025Q3

REPORT INFORMATION
  Report Type: Spontaneous
  Country: EU (occurrence: EU)
  Receive Date: 20250909
  Receipt Date: 20250915
  Transmission Date: 20251020
  Serious: Yes (Other)
  Sender: UCB
  Company Number: None

PATIENT
  Age: 66 Year
  Sex: Female
  Weight: 176 kg

DRUGS (10)
  1. KEPPRA [Suspect]
     Active Substance: LEVETIRACETAM
     Indication: Seizure
     Dosage: 750 MILLIGRAM, 2X/DAY (BID)
     Dates: start: 2011, end: 2025
  2. LAMOTRIGINE [Interacting]
     Active Substance: LAMOTRIGINE
     Indication: Seizure
     Dates: start: 2013
  3. ACETAMINOPHEN [Interacting]
     Active Substance: ACETAMINOPHEN
     Indication: Product used for unknown indication
  4. IBUPROFEN [Interacting]
     Active Substance: IBUPROFEN
     Indication: Product used for unknown indication
  5. METAMIZOLE [Interacting]
     Active Substance: METAMIZOLE
     Indication: Product used for unknown indication
  6. GABAPENTIN [Concomitant]
     Active Substance: GABAPENTIN
     Indication: Product used for unknown indication
  7. MOCLOBEMIDE [Concomitant]
     Active Substance: MOCLOBEMIDE
     Indication: Depression
     Route: 048
     Dates: start: 2006, end: 2025
  8. DICLOFENAC [Concomitant]
     Active Substance: DICLOFENAC
     Indication: Back pain
  9. ARCOXIA [Concomitant]
     Active Substance: ETORICOXIB
     Indication: Back pain
  10. BACLOFEN [Concomitant]
     Active Substance: BACLOFEN
     Indication: Back pain

REACTIONS (6)
  - Seizure [Unknown]
  - Anticonvulsant drug level decreased [Not Recovered/Not Resolved]
  - Drug interaction [Unknown]
  - Fatigue [Not Recovered/Not Resolved]
  - Disturbance in attention [Not Recovered/Not Resolved]
  - Dizziness [Not Recovered/Not Resolved]

NARRATIVE: CASE EVENT DATE: 20070101
